FAERS Safety Report 9796047 (Version 2)
Quarter: 2014Q1

REPORT INFORMATION
  Report Type: Spontaneous
  Country: US (occurrence: US)
  Receive Date: 20140103
  Receipt Date: 20140210
  Transmission Date: 20141002
  Serious: Yes (Hospitalization, Other)
  Sender: FDA-Public Use
  Company Number: US-PFIZER INC-2013374464

PATIENT
  Age: 81 Year
  Sex: Female

DRUGS (1)
  1. REVATIO [Suspect]
     Indication: PULMONARY ARTERIAL HYPERTENSION
     Dosage: 40 MG, 3X/DAY
     Dates: start: 20120517

REACTIONS (2)
  - Suffocation feeling [Recovering/Resolving]
  - Malaise [Recovering/Resolving]
